FAERS Safety Report 9964206 (Version 1)
Quarter: 2014Q1

REPORT INFORMATION
  Report Type: Spontaneous
  Country: PT (occurrence: PT)
  Receive Date: 20140305
  Receipt Date: 20140305
  Transmission Date: 20141002
  Serious: Yes (Hospitalization)
  Sender: FDA-Public Use
  Company Number: PT-B.I. PHARMACEUTICALS,INC./RIDGEFIELD-2014-BI-09364PO

PATIENT
  Age: 79 Year
  Sex: Male

DRUGS (3)
  1. PRADAXA [Suspect]
     Indication: ATRIAL FIBRILLATION
     Dosage: 220 MG
     Route: 065
  2. ROSUVASTATIN [Concomitant]
     Route: 065
  3. LOSARTAN [Concomitant]
     Route: 065

REACTIONS (2)
  - Hypokinesia [Recovered/Resolved with Sequelae]
  - Back pain [Unknown]
